FAERS Safety Report 10802299 (Version 1)
Quarter: 2015Q1

REPORT INFORMATION
  Report Type: Spontaneous
  Country: CO (occurrence: CO)
  Receive Date: 20150217
  Receipt Date: 20150217
  Transmission Date: 20150721
  Serious: Yes (Death, Hospitalization)
  Sender: FDA-Public Use
  Company Number: CO-PFIZER INC-2015060425

PATIENT
  Age: 49 Year
  Sex: Male

DRUGS (1)
  1. SUTENT [Suspect]
     Active Substance: SUNITINIB MALATE
     Indication: RENAL CANCER METASTATIC
     Dosage: 37.5 MG, DAILY
     Route: 048
     Dates: start: 20141029, end: 20150114

REACTIONS (6)
  - Malnutrition [Fatal]
  - Fluid retention [Unknown]
  - Disease progression [Unknown]
  - Inflammation [Unknown]
  - Renal cancer metastatic [Unknown]
  - Respiratory arrest [Fatal]

NARRATIVE: CASE EVENT DATE: 20150112
